FAERS Safety Report 18372558 (Version 1)
Quarter: 2020Q4

REPORT INFORMATION
  Report Type: Spontaneous
  Country: US (occurrence: US)
  Receive Date: 20201012
  Receipt Date: 20201012
  Transmission Date: 20210114
  Serious: Yes (Hospitalization, Other)
  Sender: FDA-Public Use
  Company Number: US-PFIZER INC-2020375086

PATIENT
  Age: 25 Year
  Sex: Female

DRUGS (4)
  1. MEPERIDINE [Concomitant]
     Active Substance: MEPERIDINE
     Indication: ABDOMINAL PAIN
     Dosage: 125 MG
     Route: 030
  2. NALOXONE [Concomitant]
     Active Substance: NALOXONE
     Dosage: 0.4 MG
     Route: 042
  3. RANITIDINE. [Interacting]
     Active Substance: RANITIDINE
     Indication: ABDOMINAL PAIN
     Dosage: 150 MG, 2X/DAY
  4. DIAZEPAM. [Suspect]
     Active Substance: DIAZEPAM
     Dosage: 10 MG
     Route: 042

REACTIONS (3)
  - Delirium [Recovered/Resolved]
  - Drug interaction [Unknown]
  - Toxicity to various agents [Unknown]
